FAERS Safety Report 4569667-1 (Version None)
Quarter: 2005Q1

REPORT INFORMATION
  Report Type: 
  Country: None (occurrence: None)
  Receive Date: 20050201
  Receipt Date: 20050117
  Transmission Date: 20050727
  Serious: Yes (Other)
  Sender: FDA-Public Use
  Company Number: DE-2004-036618

PATIENT
  Age: 60 Year
  Sex: Male

DRUGS (1)
  1. BETAFERON (INTERFERON BETA-1B)INJECTION 250 UG [Suspect]
     Dosage: SUBCUTANEOUS
     Route: 058
     Dates: start: 19980101

REACTIONS (4)
  - AGGRESSION [None]
  - AMNESIA [None]
  - CONFUSIONAL STATE [None]
  - HALLUCINATION [None]
